FAERS Safety Report 11734579 (Version 1)
Quarter: 2015Q4

REPORT INFORMATION
  Report Type: Spontaneous
  Country: IT (occurrence: IT)
  Receive Date: 20151113
  Receipt Date: 20151113
  Transmission Date: 20160304
  Serious: Yes (Hospitalization)
  Sender: FDA-Public Use
  Company Number: IT-ASTRAZENECA-2015SF08244

PATIENT
  Sex: Female

DRUGS (1)
  1. DAPAGLIFLOZIN [Suspect]
     Active Substance: DAPAGLIFLOZIN
     Indication: LATENT AUTOIMMUNE DIABETES IN ADULTS
     Dosage: 10 MG, UNKNOWN
     Route: 048

REACTIONS (5)
  - Diabetic ketoacidosis [Unknown]
  - Blood bicarbonate increased [Unknown]
  - Off label use [Unknown]
  - Gastroenteritis [Unknown]
  - Product use issue [Unknown]
